FAERS Safety Report 5173213-1 (Version None)
Quarter: 2006Q4

REPORT INFORMATION
  Report Type: 
  Country: None (occurrence: None)
  Receive Date: 20061214
  Receipt Date: 20061201
  Transmission Date: 20070319
  Serious: Yes (Hospitalization)
  Sender: FDA-Public Use
  Company Number: FR-SOLVAY-00206004015

PATIENT
  Age: 31026 Day
  Sex: Male

DRUGS (3)
  1. PERINDOPRIL ERBUMINE [Suspect]
     Indication: ILL-DEFINED DISORDER
     Dosage: DAILY DOSE: 1 DOSAGE FORM
     Route: 048
     Dates: start: 20040101, end: 20061118
  2. NOCTAMID [Suspect]
     Indication: ILL-DEFINED DISORDER
     Dosage: DAILY DOSE: 2 MILLIGRAM(S)
     Route: 048
     Dates: start: 20030101
  3. PRAZEPAM [Suspect]
     Indication: ILL-DEFINED DISORDER
     Dosage: DAILY DOSE: 10 MILLIGRAM(S)
     Route: 048
     Dates: start: 20040101

REACTIONS (8)
  - DRUG INTERACTION [None]
  - EOSINOPHILIA [None]
  - EPITHELIOMA [None]
  - INSOMNIA [None]
  - LYMPHADENOPATHY [None]
  - PRURITUS [None]
  - RASH MACULO-PAPULAR [None]
  - SEZARY CELLS INCREASED [None]
